FAERS Safety Report 4365684-5 (Version None)
Quarter: 2004Q2

REPORT INFORMATION
  Report Type: 
  Country: None (occurrence: None)
  Receive Date: 20040520
  Receipt Date: 20040430
  Transmission Date: 20050107
  Serious: Yes (Other)
  Sender: FDA-Public Use
  Company Number: 206561

PATIENT
  Age: 12 Year
  Sex: Female

DRUGS (4)
  1. PROTROPIN [Suspect]
     Dosage: 1.6 MG, 6/WEEK,
     Dates: start: 19950101
  2. CORTEF [Concomitant]
  3. DDAVP (DESMOPRESSIN ACETATE) [Concomitant]
  4. LEVOTHYROXINE (LEVOTHYROXINE SODIUM) [Concomitant]

REACTIONS (3)
  - ASTROCYTOMA [None]
  - CONDITION AGGRAVATED [None]
  - DRUG INEFFECTIVE [None]
